FAERS Safety Report 7380297-9 (Version None)
Quarter: 2011Q1

REPORT INFORMATION
  Report Type: 
  Country: None (occurrence: None)
  Receive Date: 20110324
  Receipt Date: 20110324
  Transmission Date: 20110831
  Serious: Yes (Hospitalization)
  Sender: FDA-Public Use
  Company Number: None

PATIENT
  Age: 15 Year
  Sex: Female

DRUGS (1)
  1. MINOCYCLINE 100 MG TEVA 3167 [Suspect]
     Indication: ACNE
     Dosage: 100MG BID PO
     Route: 048
     Dates: start: 20110215, end: 20110316

REACTIONS (1)
  - BENIGN INTRACRANIAL HYPERTENSION [None]
